FAERS Safety Report 24249303 (Version 1)
Quarter: 2024Q3

REPORT INFORMATION
  Report Type: Spontaneous
  Country: US (occurrence: US)
  Receive Date: 20240826
  Receipt Date: 20240826
  Transmission Date: 20241017
  Serious: No
  Sender: BAYER
  Company Number: US-BAYER-2024A122274

PATIENT
  Sex: Male

DRUGS (2)
  1. GADAVIST [Suspect]
     Active Substance: GADOBUTROL
     Indication: Scan with contrast
     Dosage: UNK, ONCE
     Dates: start: 20240823, end: 20240823
  2. GADAVIST [Suspect]
     Active Substance: GADOBUTROL
     Indication: Magnetic resonance imaging

REACTIONS (1)
  - Headache [None]

NARRATIVE: CASE EVENT DATE: 20240823
